FAERS Safety Report 11735317 (Version 2)
Quarter: 2017Q1

REPORT INFORMATION
  Report Type: Spontaneous
  Country: US (occurrence: US)
  Receive Date: 20151113
  Receipt Date: 20170201
  Transmission Date: 20170428
  Serious: Yes (Other)
  Sender: FDA-Public Use
  Company Number: US-ELI_LILLY_AND_COMPANY-US201511001076

PATIENT
  Sex: Male
  Weight: 111 kg

DRUGS (2)
  1. CYMBALTA [Suspect]
     Active Substance: DULOXETINE HYDROCHLORIDE
     Indication: DEPRESSION
     Dosage: 60 MG, QD
     Route: 048
  2. CYMBALTA [Suspect]
     Active Substance: DULOXETINE HYDROCHLORIDE
     Indication: PAIN

REACTIONS (13)
  - Mood swings [Unknown]
  - Paraesthesia [Unknown]
  - Nausea [Unknown]
  - Headache [Unknown]
  - Drug withdrawal syndrome [Unknown]
  - Nightmare [Unknown]
  - Sleep disorder [Unknown]
  - Vertigo [Unknown]
  - Vomiting [Unknown]
  - Suicidal ideation [Unknown]
  - Dizziness [Unknown]
  - Insomnia [Unknown]
  - Tremor [Unknown]
